FAERS Safety Report 23254205 (Version 1)
Quarter: 2023Q4

REPORT INFORMATION
  Report Type: Spontaneous
  Country: CA (occurrence: CA)
  Receive Date: 20231202
  Receipt Date: 20231202
  Transmission Date: 20240110
  Serious: Yes (Other)
  Sender: FDA-Public Use
  Company Number: None

PATIENT
  Age: 9 Year
  Sex: Male

DRUGS (1)
  1. LEVETIRACETAM [Suspect]
     Active Substance: LEVETIRACETAM
     Indication: Generalised tonic-clonic seizure
     Route: 065

REACTIONS (5)
  - Depression [Recovered/Resolved]
  - Migraine [Recovered/Resolved]
  - Suicidal ideation [Recovered/Resolved]
  - Petit mal epilepsy [Recovered/Resolved]
  - Anxiety [Recovered/Resolved]
